FAERS Safety Report 5712494-X (Version None)
Quarter: 2008Q2

REPORT INFORMATION
  Report Type: 
  Country: None (occurrence: None)
  Receive Date: 20080422
  Receipt Date: 20080408
  Transmission Date: 20081010
  Serious: Yes (Hospitalization)
  Sender: FDA-Public Use
  Company Number: US-AMGEN-US273409

PATIENT
  Sex: Male

DRUGS (3)
  1. PANITUMUMAB [Suspect]
     Indication: SQUAMOUS CELL CARCINOMA
     Route: 042
     Dates: start: 20080327, end: 20080327
  2. DOCETAXEL [Suspect]
     Route: 065
  3. CISPLATIN [Suspect]
     Route: 065

REACTIONS (1)
  - PANCYTOPENIA [None]
